FAERS Safety Report 6467418-7 (Version None)
Quarter: 2009Q4

REPORT INFORMATION
  Report Type: 
  Country: None (occurrence: None)
  Receive Date: 20091202
  Receipt Date: 20091125
  Transmission Date: 20100525
  Serious: Yes (Hospitalization)
  Sender: FDA-Public Use
  Company Number: A0832582A

PATIENT
  Sex: Male
  Weight: 84 kg

DRUGS (3)
  1. LAPATINIB [Suspect]
     Dosage: 1500MG PER DAY
     Route: 048
     Dates: start: 20080429
  2. CISPLATIN [Suspect]
     Dosage: 100MGM2 CYCLIC
     Route: 042
     Dates: start: 20080506
  3. RADIOTHERAPY [Suspect]
     Dosage: 2GY VARIABLE DOSE
     Route: 061
     Dates: start: 20080506

REACTIONS (1)
  - GASTROINTESTINAL INFECTION [None]
